FAERS Safety Report 23876740 (Version 2)
Quarter: 2024Q2

REPORT INFORMATION
  Report Type: Spontaneous
  Country: JP (occurrence: JP)
  Receive Date: 20240521
  Receipt Date: 20240613
  Transmission Date: 20240716
  Serious: Yes (Hospitalization, Other)
  Sender: FDA-Public Use
  Company Number: JP-BRISTOL-MYERS SQUIBB COMPANY-2024-075831

PATIENT
  Age: 9 Decade
  Sex: Male

DRUGS (4)
  1. YERVOY [Suspect]
     Active Substance: IPILIMUMAB
     Indication: Non-small cell lung cancer recurrent
     Route: 042
  2. OPDIVO [Suspect]
     Active Substance: NIVOLUMAB
     Indication: Non-small cell lung cancer recurrent
     Route: 041
  3. LANDIOLOL [Suspect]
     Active Substance: LANDIOLOL
     Indication: Atrial fibrillation
     Route: 041
  4. CEFTRIAXONE [Concomitant]
     Active Substance: CEFTRIAXONE\CEFTRIAXONE SODIUM
     Indication: Pneumonia

REACTIONS (5)
  - Thyrotoxic crisis [Recovering/Resolving]
  - Immune-mediated thyroiditis [Recovering/Resolving]
  - Rib fracture [Unknown]
  - Atrial fibrillation [Unknown]
  - Fall [Unknown]
